FAERS Safety Report 8417340-1 (Version None)
Quarter: 2012Q2

REPORT INFORMATION
  Report Type: 
  Country: None (occurrence: None)
  Receive Date: 20120606
  Receipt Date: 20120530
  Transmission Date: 20120825
  Serious: Yes (Other)
  Sender: FDA-Public Use
  Company Number: US-MPIJNJ-2012-03887

PATIENT

DRUGS (1)
  1. VELCADE [Suspect]
     Indication: HEART TRANSPLANT

REACTIONS (1)
  - TRANSPLANT REJECTION [None]
